FAERS Safety Report 5871428-8 (Version None)
Quarter: 2008Q3

REPORT INFORMATION
  Report Type: 
  Country: None (occurrence: None)
  Receive Date: 20080905
  Receipt Date: 20080829
  Transmission Date: 20090109
  Serious: Yes (Other)
  Sender: FDA-Public Use
  Company Number: PHHY2008CH19637

PATIENT
  Sex: Female

DRUGS (12)
  1. ACLASTA [Suspect]
     Indication: OSTEOPENIA
     Dosage: 5 MG
     Dates: start: 20080321
  2. ACLASTA [Suspect]
     Indication: SPINAL FRACTURE
  3. MORPHINE [Concomitant]
  4. ASPIRIN [Concomitant]
     Dosage: 100 MG/DAY
  5. SORTIS [Concomitant]
     Dosage: 40 MG/DAY
  6. ACETAMINOPHEN [Concomitant]
     Dosage: 3000 G/DAY
  7. MIACALCIN [Concomitant]
  8. PANTOZOL [Concomitant]
  9. AUGMENTIN '125' [Concomitant]
  10. FLAGYL [Concomitant]
  11. FERINJECT [Concomitant]
     Route: 042
  12. MAGNESIUM SULFATE [Concomitant]

REACTIONS (3)
  - ASTHENIA [None]
  - HYPOCALCAEMIA [None]
  - MALAISE [None]
